FAERS Safety Report 11178458 (Version 1)
Quarter: 2015Q2

REPORT INFORMATION
  Report Type: Spontaneous
  Country: US (occurrence: US)
  Receive Date: 20150610
  Receipt Date: 20150610
  Transmission Date: 20150821
  Serious: Yes (Other)
  Sender: FDA-Public Use
  Company Number: US-ASTRAZENECA-2015SE54564

PATIENT
  Age: 85 Year
  Sex: Female

DRUGS (2)
  1. ASPIRIN. [Concomitant]
     Active Substance: ASPIRIN
     Route: 048
  2. BRILINTA [Suspect]
     Active Substance: TICAGRELOR
     Route: 048

REACTIONS (6)
  - Renal impairment [Unknown]
  - Pneumonia [Unknown]
  - Intentional product misuse [Unknown]
  - Coronary artery occlusion [Unknown]
  - Cardiac tamponade [Unknown]
  - Pericardial effusion [Unknown]
